FAERS Safety Report 21907236 (Version 1)
Quarter: 2023Q1

REPORT INFORMATION
  Report Type: Spontaneous
  Country: US (occurrence: US)
  Receive Date: 20230125
  Receipt Date: 20230125
  Transmission Date: 20230418
  Serious: No
  Sender: FDA-Public Use
  Company Number: US-ELI_LILLY_AND_COMPANY-US202301007914

PATIENT
  Sex: Female

DRUGS (2)
  1. FORTEO [Suspect]
     Active Substance: TERIPARATIDE
     Indication: Osteoporosis
     Dosage: 20 UG, UNKNOWN
     Route: 058
     Dates: start: 202212
  2. FORTEO [Suspect]
     Active Substance: TERIPARATIDE
     Dosage: 20 UG, UNKNOWN (TWICE A WEEK)
     Route: 058

REACTIONS (8)
  - Illness [Recovering/Resolving]
  - Feeling abnormal [Recovering/Resolving]
  - Lymphadenopathy [Recovering/Resolving]
  - Headache [Recovering/Resolving]
  - Bone pain [Recovering/Resolving]
  - Hypersomnia [Recovering/Resolving]
  - Back pain [Recovering/Resolving]
  - Joint swelling [Recovering/Resolving]
